FAERS Safety Report 6561677-8 (Version None)
Quarter: 2010Q1

REPORT INFORMATION
  Report Type: 
  Country: None (occurrence: None)
  Receive Date: 20100130
  Receipt Date: 20091021
  Transmission Date: 20100710
  Serious: No
  Sender: FDA-Public Use
  Company Number: US-ABBOTT-09P-163-0604780-00

PATIENT
  Sex: Female
  Weight: 77.18 kg

DRUGS (15)
  1. HUMIRA [Suspect]
     Indication: ANKYLOSING SPONDYLITIS
     Route: 058
     Dates: start: 20090301
  2. HUMIRA [Suspect]
     Indication: PSORIATIC ARTHROPATHY
  3. ARAVA [Suspect]
     Indication: DRUG USE FOR UNKNOWN INDICATION
  4. ATENOLOL [Concomitant]
     Indication: DRUG USE FOR UNKNOWN INDICATION
  5. BENICAR [Concomitant]
     Indication: DRUG USE FOR UNKNOWN INDICATION
  6. CLONIDINE [Concomitant]
     Indication: DRUG USE FOR UNKNOWN INDICATION
  7. GABAPENTIN [Concomitant]
     Indication: DRUG USE FOR UNKNOWN INDICATION
  8. SIMVASTATIN [Concomitant]
     Indication: DRUG USE FOR UNKNOWN INDICATION
  9. HYDRALAZINE/HYDROCHLOROTHIAZIDE [Concomitant]
     Indication: DRUG USE FOR UNKNOWN INDICATION
  10. ELMIRAN [Concomitant]
     Indication: DRUG USE FOR UNKNOWN INDICATION
  11. XYZAL [Concomitant]
     Indication: DRUG USE FOR UNKNOWN INDICATION
  12. HYDROCODONE [Concomitant]
     Indication: DRUG USE FOR UNKNOWN INDICATION
  13. LEUFLONAMIDE [Concomitant]
     Indication: DRUG USE FOR UNKNOWN INDICATION
  14. SPIRIVA [Concomitant]
     Indication: DRUG USE FOR UNKNOWN INDICATION
  15. NASACORT [Concomitant]
     Indication: DRUG USE FOR UNKNOWN INDICATION

REACTIONS (1)
  - RASH GENERALISED [None]
